FAERS Safety Report 7022889-2 (Version None)
Quarter: 2010Q3

REPORT INFORMATION
  Report Type: 
  Country: None (occurrence: None)
  Receive Date: 20100930
  Receipt Date: 20100920
  Transmission Date: 20110219
  Serious: Yes (Hospitalization)
  Sender: FDA-Public Use
  Company Number: CA-JNJFOC-20100906875

PATIENT
  Sex: Female
  Weight: 92.76 kg

DRUGS (8)
  1. REMICADE [Suspect]
     Indication: PSORIASIS
     Route: 042
  2. ATARAX [Concomitant]
  3. ZOLOFT [Concomitant]
  4. CODEINE [Concomitant]
  5. TYLENOL [Concomitant]
  6. IMOVANE [Concomitant]
  7. REACTINE [Concomitant]
  8. FLONASE [Concomitant]

REACTIONS (2)
  - FALL [None]
  - WRIST FRACTURE [None]
